FAERS Safety Report 5556352-2 (Version None)
Quarter: 2007Q4

REPORT INFORMATION
  Report Type: 
  Country: None (occurrence: None)
  Receive Date: 20071213
  Receipt Date: 20070919
  Transmission Date: 20080405
  Serious: No
  Sender: FDA-Public Use
  Company Number: US-AMGEN-KDL238214

PATIENT
  Sex: Female
  Weight: 107.6 kg

DRUGS (2)
  1. ENBREL [Suspect]
     Indication: PSORIATIC ARTHROPATHY
     Route: 058
     Dates: start: 20070731
  2. PLAQUENIL [Concomitant]
     Route: 048
     Dates: start: 20050801

REACTIONS (2)
  - EAR PAIN [None]
  - HEADACHE [None]
